FAERS Safety Report 4714261-2 (Version None)
Quarter: 2005Q3

REPORT INFORMATION
  Report Type: 
  Country: None (occurrence: None)
  Receive Date: 20050714
  Receipt Date: 20050629
  Transmission Date: 20060218
  Serious: Yes (Hospitalization)
  Sender: FDA-Public Use
  Company Number: FR-JNJFOC-20050607171

PATIENT
  Age: 24 Year
  Sex: Female

DRUGS (4)
  1. GYNO-PEVARYL [Suspect]
     Route: 067
     Dates: start: 20050415, end: 20050423
  2. PNEUMOREL [Suspect]
     Route: 049
  3. SOLUPRED [Suspect]
     Route: 049
  4. ORELOX [Suspect]
     Route: 049

REACTIONS (1)
  - HEPATITIS [None]
